FAERS Safety Report 14637201 (Version 1)
Quarter: 2018Q1

REPORT INFORMATION
  Report Type: Spontaneous
  Country: US (occurrence: US)
  Receive Date: 20180314
  Receipt Date: 20180314
  Transmission Date: 20180509
  Serious: Yes (Death)
  Sender: FDA-Public Use
  Company Number: None

PATIENT
  Age: 22 Year
  Sex: Male
  Weight: 88 kg

DRUGS (3)
  1. ROYAL KRATOM, 30 CAPSULES [Suspect]
     Active Substance: MITRAGYNINE\HERBALS
     Indication: DRUG DIVERSION
  2. MAENG DA [Concomitant]
  3. ROYAL KRATOM, 30 CAPSULES [Suspect]
     Active Substance: MITRAGYNINE\HERBALS
     Indication: PRODUCT USED FOR UNKNOWN INDICATION

REACTIONS (2)
  - Accidental death [None]
  - Toxicity to various agents [None]

NARRATIVE: CASE EVENT DATE: 20150308
